FAERS Safety Report 6940671-9 (Version None)
Quarter: 2010Q3

REPORT INFORMATION
  Report Type: 
  Country: None (occurrence: None)
  Receive Date: 20100825
  Receipt Date: 20100810
  Transmission Date: 20110219
  Serious: Yes (Other)
  Sender: FDA-Public Use
  Company Number: CA-ROCHE-706731

PATIENT
  Sex: Female

DRUGS (1)
  1. OSELTAMIVIR [Suspect]
     Indication: H1N1 INFLUENZA
     Route: 065

REACTIONS (9)
  - ABORTION SPONTANEOUS [None]
  - DEATH NEONATAL [None]
  - HYPOXIC-ISCHAEMIC ENCEPHALOPATHY [None]
  - LIVE BIRTH [None]
  - NEONATAL ASPHYXIA [None]
  - PREGNANCY [None]
  - PREMATURE LABOUR [None]
  - PREMATURE RUPTURE OF MEMBRANES [None]
  - STILLBIRTH [None]
